FAERS Safety Report 5860641-1 (Version None)
Quarter: 2008Q3

REPORT INFORMATION
  Report Type: 
  Country: None (occurrence: None)
  Receive Date: 20080827
  Receipt Date: 20071008
  Transmission Date: 20090109
  Serious: No
  Sender: FDA-Public Use
  Company Number: US-ABBOTT-07P-163-0419796-00

PATIENT
  Sex: Male
  Weight: 77.18 kg

DRUGS (4)
  1. COATED PDS [Suspect]
     Indication: BLOOD TRIGLYCERIDES INCREASED
     Route: 048
     Dates: start: 20070918, end: 20071007
  2. COATED PDS [Suspect]
     Indication: HIGH DENSITY LIPOPROTEIN DECREASED
  3. LOWTENSIN [Concomitant]
     Indication: HYPERTENSION
     Route: 048
  4. ALLOPURINOL [Concomitant]
     Indication: BLOOD URIC ACID INCREASED
     Route: 048

REACTIONS (4)
  - BURNING SENSATION [None]
  - HEADACHE [None]
  - HYPERHIDROSIS [None]
  - PRURITUS GENERALISED [None]
